FAERS Safety Report 4647166-6 (Version None)
Quarter: 2005Q2

REPORT INFORMATION
  Report Type: 
  Country: None (occurrence: None)
  Receive Date: 20050426
  Receipt Date: 20050426
  Transmission Date: 20051028
  Serious: No
  Sender: FDA-Public Use
  Company Number: None

PATIENT
  Sex: Male
  Weight: 82.1011 kg

DRUGS (8)
  1. IPRATROPIUM BROMIDE [Suspect]
     Indication: CHRONIC OBSTRUCTIVE PULMONARY DISEASE
     Dosage: 3 ML PER NEB Q4 HOURS PRN
     Dates: start: 20050402, end: 20050419
  2. ALBUTEROL [Concomitant]
  3. LORTAB [Concomitant]
  4. LASIX [Concomitant]
  5. TERAZOSIN [Concomitant]
  6. SIMVASTATIN [Concomitant]
  7. ISOSORBIDE [Concomitant]
  8. METOPROLOL TARTRATE [Concomitant]

REACTIONS (4)
  - ERYTHEMA [None]
  - OEDEMA MOUTH [None]
  - ORAL PAIN [None]
  - ORAL SOFT TISSUE DISORDER [None]
